FAERS Safety Report 12938802 (Version 1)
Quarter: 2016Q4

REPORT INFORMATION
  Report Type: Spontaneous
  Country: US (occurrence: US)
  Receive Date: 20161114
  Receipt Date: 20161114
  Transmission Date: 20170207
  Serious: No
  Sender: FDA-Public Use
  Company Number: US-ACADIA PHARMACEUTICALS INC.-ACA-2016-000512

PATIENT
  Sex: Male

DRUGS (1)
  1. NUPLAZID [Suspect]
     Active Substance: PIMAVANSERIN TARTRATE
     Indication: PRODUCT USED FOR UNKNOWN INDICATION
     Dosage: 17 MG IN PM AND 17 MG IN AM
     Route: 048
     Dates: start: 2016

REACTIONS (4)
  - Incoherent [Unknown]
  - Productive cough [Unknown]
  - Joint swelling [Unknown]
  - Confusional state [Unknown]

NARRATIVE: CASE EVENT DATE: 2016
